FAERS Safety Report 6081282-X (Version None)
Quarter: 2009Q1

REPORT INFORMATION
  Report Type: 
  Country: None (occurrence: None)
  Receive Date: 20090213
  Receipt Date: 20090203
  Transmission Date: 20090719
  Serious: Yes (Hospitalization)
  Sender: FDA-Public Use
  Company Number: KV200900161

PATIENT
  Age: 40 Year
  Sex: Female

DRUGS (5)
  1. HYDROMORPHONE HCL [Suspect]
     Indication: JUVENILE ARTHRITIS
     Dosage: ORAL
     Route: 048
  2. PREDNISONE [Concomitant]
  3. METHOTREXATE [Concomitant]
  4. HUMIRA [Concomitant]
  5. LORAZEPAM [Concomitant]

REACTIONS (5)
  - BRONCHITIS [None]
  - CHEST DISCOMFORT [None]
  - DYSPNOEA [None]
  - FATIGUE [None]
  - PALPITATIONS [None]
